FAERS Safety Report 8577997-1 (Version None)
Quarter: 2012Q3

REPORT INFORMATION
  Report Type: 
  Country: None (occurrence: None)
  Receive Date: 20120808
  Receipt Date: 20120727
  Transmission Date: 20120928
  Serious: Yes (Other)
  Sender: FDA-Public Use
  Company Number: US-BRISTOL-MYERS SQUIBB COMPANY-16815300

PATIENT
  Age: 73 Year
  Sex: Female
  Weight: 82 kg

DRUGS (5)
  1. BENAZEPRIL HYDROCHLORIDE [Concomitant]
  2. PREDNISONE [Concomitant]
  3. AMLODIPINE [Concomitant]
  4. ORENCIA [Suspect]
     Indication: RHEUMATOID ARTHRITIS
     Dosage: ROUTE: IV OR SUBCUTANEOUS
     Dates: start: 20070101
  5. METOPROLOL TARTRATE [Concomitant]

REACTIONS (4)
  - PYODERMA GANGRENOSUM [None]
  - FUNGAL INFECTION [None]
  - OEDEMA PERIPHERAL [None]
  - SKIN BACTERIAL INFECTION [None]
